FAERS Safety Report 15675642 (Version 1)
Quarter: 2018Q4

REPORT INFORMATION
  Report Type: Spontaneous
  Country: US (occurrence: US)
  Receive Date: 20181119
  Receipt Date: 20181119
  Transmission Date: 20190205
  Serious: Yes (Hospitalization)
  Sender: FDA-Public Use
  Company Number: None

PATIENT
  Age: 69 Year
  Sex: Female
  Weight: 110.8 kg

DRUGS (3)
  1. DEXAMETHASONE. [Suspect]
     Active Substance: DEXAMETHASONE
     Dates: end: 20181030
  2. LENALIDOMIDE [Suspect]
     Active Substance: LENALIDOMIDE
     Dates: end: 20181101
  3. VELCADE [Suspect]
     Active Substance: BORTEZOMIB
     Dates: end: 20181030

REACTIONS (7)
  - Sputum discoloured [None]
  - Upper respiratory tract infection [None]
  - Pulmonary congestion [None]
  - Pneumonia [None]
  - Cough [None]
  - Dyspnoea [None]
  - Respiratory distress [None]

NARRATIVE: CASE EVENT DATE: 20181104
